FAERS Safety Report 11327219 (Version 2)
Quarter: 2015Q3

REPORT INFORMATION
  Report Type: Spontaneous
  Country: US (occurrence: US)
  Receive Date: 20150731
  Receipt Date: 20150827
  Transmission Date: 20151125
  Serious: Yes (Death)
  Sender: FDA-Public Use
  Company Number: US-PFIZER INC-2015247018

PATIENT
  Age: 50 Year
  Sex: Female
  Weight: 71 kg

DRUGS (3)
  1. IBRANCE [Suspect]
     Active Substance: PALBOCICLIB
     Indication: BREAST CANCER METASTATIC
     Dosage: UNK
     Dates: start: 20150609
  2. FASLODEX [Suspect]
     Active Substance: FULVESTRANT
     Indication: BREAST CANCER METASTATIC
     Dosage: 500 MG, UNK (IN 2 WEEKS)
     Dates: start: 20150608
  3. XGEVA [Concomitant]
     Active Substance: DENOSUMAB
     Indication: METASTASES TO BONE
     Dosage: UNK

REACTIONS (11)
  - Anxiety [Unknown]
  - Product use issue [Unknown]
  - Breast cancer metastatic [Fatal]
  - Cough [Unknown]
  - Venous stenosis [Unknown]
  - Thyroid neoplasm [Unknown]
  - Nausea [Unknown]
  - Oedema [Unknown]
  - Disease progression [Fatal]
  - Aspartate aminotransferase increased [Unknown]
  - Depression [Unknown]
